FAERS Safety Report 21772300 (Version 6)
Quarter: 2023Q2

REPORT INFORMATION
  Report Type: Report from Study
  Country: US (occurrence: US)
  Receive Date: 20221223
  Receipt Date: 20230609
  Transmission Date: 20230721
  Serious: No
  Sender: FDA-Public Use
  Company Number: US-002147023-NVSC2022US297291

PATIENT
  Sex: Female

DRUGS (1)
  1. COSENTYX [Suspect]
     Active Substance: SECUKINUMAB
     Indication: Psoriasis
     Dosage: UNK
     Route: 065
     Dates: start: 202211

REACTIONS (4)
  - COVID-19 [Not Recovered/Not Resolved]
  - Bronchitis [Recovering/Resolving]
  - Oropharyngeal pain [Recovering/Resolving]
  - Incorrect dose administered [Unknown]
